FAERS Safety Report 11318285 (Version 3)
Quarter: 2020Q2

REPORT INFORMATION
  Report Type: Report from Study
  Country: AU (occurrence: AU)
  Receive Date: 20150728
  Receipt Date: 20200519
  Transmission Date: 20200713
  Serious: Yes (Other)
  Sender: FDA-Public Use
  Company Number: PHHY2015AU089864

PATIENT
  Age: 43 Year
  Sex: Female
  Weight: 88 kg

DRUGS (1)
  1. GILENYA [Suspect]
     Active Substance: FINGOLIMOD HYDROCHLORIDE
     Indication: MULTIPLE SCLEROSIS
     Dosage: 1 DF, QD
     Route: 048
     Dates: start: 20150518, end: 20160715

REACTIONS (17)
  - Gamma-glutamyltransferase increased [Unknown]
  - Intraductal proliferative breast lesion [Not Recovered/Not Resolved]
  - Lymphocyte count decreased [Unknown]
  - Drug hypersensitivity [Unknown]
  - Urticaria [Recovered/Resolved]
  - Abdominal pain [Not Recovered/Not Resolved]
  - Invasive ductal breast carcinoma [Unknown]
  - Headache [Not Recovered/Not Resolved]
  - Haemoptysis [Recovered/Resolved]
  - Injection site reaction [Unknown]
  - Alanine aminotransferase increased [Unknown]
  - Blood alkaline phosphatase increased [Unknown]
  - Liver function test abnormal [Not Recovered/Not Resolved]
  - Aspartate aminotransferase increased [Unknown]
  - Seasonal allergy [Not Recovered/Not Resolved]
  - Allergy to animal [Not Recovered/Not Resolved]
  - Diarrhoea [Not Recovered/Not Resolved]

NARRATIVE: CASE EVENT DATE: 20150618
